FAERS Safety Report 6590985-X (Version None)
Quarter: 2010Q1

REPORT INFORMATION
  Report Type: 
  Country: None (occurrence: None)
  Receive Date: 20100219
  Receipt Date: 20100209
  Transmission Date: 20100710
  Serious: Yes (Hospitalization, Other)
  Sender: FDA-Public Use
  Company Number: US-ELI_LILLY_AND_COMPANY-US201001002482

PATIENT
  Sex: Male

DRUGS (3)
  1. HUMALOG [Suspect]
     Indication: DIABETES MELLITUS
     Dosage: 7 U, 3/D
  2. HUMALOG [Suspect]
     Dosage: 7 U, 3/D
  3. HUMALOG [Suspect]
     Dosage: 7 U, 3/D

REACTIONS (6)
  - BLOOD GLUCOSE INCREASED [None]
  - CARDIAC OPERATION [None]
  - DEVICE MALFUNCTION [None]
  - INCORRECT DOSE ADMINISTERED [None]
  - MITRAL VALVE REPLACEMENT [None]
  - WRONG TECHNIQUE IN DRUG USAGE PROCESS [None]
